FAERS Safety Report 9489928 (Version 2)
Quarter: 2013Q3

REPORT INFORMATION
  Report Type: Spontaneous
  Country: US (occurrence: US)
  Receive Date: 20130829
  Receipt Date: 20130911
  Transmission Date: 20140515
  Serious: Yes (Hospitalization)
  Sender: FDA-Public Use
  Company Number: US-GILEAD-2013-0082253

PATIENT
  Sex: Female

DRUGS (3)
  1. LETAIRIS [Suspect]
     Indication: PULMONARY HYPERTENSION
     Dosage: 10 MG, QD
     Dates: start: 20110823
  2. LETAIRIS [Suspect]
     Indication: HIV INFECTION
  3. REMODULIN [Concomitant]

REACTIONS (4)
  - Musculoskeletal pain [Unknown]
  - Administration site pain [Unknown]
  - Administration site infection [Unknown]
  - Unevaluable event [Unknown]
